FAERS Safety Report 6380752-4 (Version None)
Quarter: 2009Q3

REPORT INFORMATION
  Report Type: 
  Country: None (occurrence: None)
  Receive Date: 20090924
  Receipt Date: 20090917
  Transmission Date: 20100115
  Serious: Yes (Life-Threatening)
  Sender: FDA-Public Use
  Company Number: 2009AL006110

PATIENT
  Age: 52 Year
  Sex: Male

DRUGS (12)
  1. TRAMADOL HYDROCHLORIDE [Suspect]
     Indication: ABDOMINAL PAIN
     Dosage: 100 MG; PO
     Route: 048
     Dates: start: 20060906, end: 20090910
  2. CLEXANE [Concomitant]
  3. OMEPRAZOLE [Concomitant]
  4. CEFUROXIME [Concomitant]
  5. METRONIDAZOLE [Concomitant]
  6. ACETAMINOPHEN [Concomitant]
  7. ORAMORPH SR [Concomitant]
  8. OXYNORM [Concomitant]
  9. ONDANSETRON [Concomitant]
  10. MORPHINE [Concomitant]
  11. BUPIVACAINE [Concomitant]
  12. FENTANYL [Concomitant]

REACTIONS (3)
  - DELUSION [None]
  - INTENTIONAL SELF-INJURY [None]
  - POST PROCEDURAL COMPLICATION [None]
